FAERS Safety Report 17191309 (Version 1)
Quarter: 2019Q4

REPORT INFORMATION
  Report Type: Report from Study
  Country: US (occurrence: US)
  Receive Date: 20191223
  Receipt Date: 20191223
  Transmission Date: 20200122
  Serious: Yes (Hospitalization, Other)
  Sender: FDA-Public Use
  Company Number: US-GLAXOSMITHKLINE-US2019GSK231839

PATIENT
  Age: 12 Year
  Sex: Male

DRUGS (1)
  1. LAMOTRIGINE. [Suspect]
     Active Substance: LAMOTRIGINE
     Indication: PRODUCT USED FOR UNKNOWN INDICATION
     Dosage: UNK

REACTIONS (10)
  - Pyrexia [Unknown]
  - Leukocytosis [Unknown]
  - Rash morbilliform [Unknown]
  - Transaminases increased [Recovered/Resolved]
  - Eosinophilia [Unknown]
  - Face oedema [Unknown]
  - Drug reaction with eosinophilia and systemic symptoms [Unknown]
  - Mucosal ulceration [Unknown]
  - Hepatosplenomegaly [Unknown]
  - Liver function test abnormal [Recovered/Resolved]
